FAERS Safety Report 8249770-5 (Version None)
Quarter: 2012Q1

REPORT INFORMATION
  Report Type: 
  Country: None (occurrence: None)
  Receive Date: 20120327
  Receipt Date: 20120316
  Transmission Date: 20120608
  Serious: Yes (Other)
  Sender: FDA-Public Use
  Company Number: 2011SP033326

PATIENT
  Sex: Male

DRUGS (1)
  1. ZENHALE (MOMETASONE FUROATE/FORMOTEROL FUMARATE) COPD [Suspect]
     Indication: ASTHMA

REACTIONS (8)
  - FATIGUE [None]
  - FOREIGN BODY [None]
  - OBSTRUCTIVE AIRWAYS DISORDER [None]
  - PAIN [None]
  - PRODUCT QUALITY ISSUE [None]
  - DYSPNOEA [None]
  - PRODUCT CONTAINER ISSUE [None]
  - CHOKING [None]
